FAERS Safety Report 13983203 (Version 1)
Quarter: 2017Q3

REPORT INFORMATION
  Report Type: Spontaneous
  Country: US (occurrence: US)
  Receive Date: 20170918
  Receipt Date: 20170918
  Transmission Date: 20171128
  Serious: No
  Sender: FDA-Public Use
  Company Number: None

PATIENT
  Age: 60 Year
  Sex: Male
  Weight: 84.15 kg

DRUGS (2)
  1. LORAZEPAM. [Suspect]
     Active Substance: LORAZEPAM
     Indication: SLEEP DISORDER
     Dosage: ?          QUANTITY:2 TABLET(S);?
     Route: 048
  2. VICODIN [Concomitant]
     Active Substance: ACETAMINOPHEN\HYDROCODONE BITARTRATE

REACTIONS (10)
  - Hypoaesthesia oral [None]
  - Enlarged uvula [None]
  - Joint range of motion decreased [None]
  - Hypoaesthesia [None]
  - Feeling abnormal [None]
  - Blood glucose increased [None]
  - Irritability [None]
  - Insomnia [None]
  - Hallucination [None]
  - Thyroid disorder [None]
